FAERS Safety Report 8523939-4 (Version None)
Quarter: 2012Q3

REPORT INFORMATION
  Report Type: 
  Country: None (occurrence: None)
  Receive Date: 20120720
  Receipt Date: 20120713
  Transmission Date: 20120928
  Serious: Yes (Hospitalization, Other)
  Sender: FDA-Public Use
  Company Number: MX-SANOFI-AVENTIS-2012SA050017

PATIENT
  Age: 66 Year
  Sex: Female
  Weight: 93 kg

DRUGS (3)
  1. PIOGLITAZONE [Concomitant]
     Indication: TYPE 2 DIABETES MELLITUS
     Route: 048
     Dates: start: 20110101
  2. OMEPRAZOLE [Concomitant]
     Route: 048
     Dates: start: 19630101
  3. LANTUS [Suspect]
     Indication: TYPE 2 DIABETES MELLITUS
     Dosage: STRENGTH: 100 IU/ML
     Route: 058
     Dates: start: 20110101

REACTIONS (7)
  - MENISCUS LESION [None]
  - PHLEBITIS [None]
  - WEIGHT INCREASED [None]
  - HEADACHE [None]
  - ARTHRALGIA [None]
  - PAIN IN EXTREMITY [None]
  - SYNOVIAL CYST [None]
